FAERS Safety Report 19451876 (Version 2)
Quarter: 2021Q2

REPORT INFORMATION
  Report Type: Spontaneous
  Country: IT (occurrence: IT)
  Receive Date: 20210623
  Receipt Date: 20210623
  Transmission Date: 20210717
  Serious: Yes (Other)
  Sender: FDA-Public Use
  Company Number: IT-HIKMA PHARMACEUTICALS USA INC.-IT-H14001-21-02908

PATIENT
  Age: 20 Year
  Sex: Male

DRUGS (5)
  1. CYTARABINE. [Suspect]
     Active Substance: CYTARABINE
     Indication: PRODUCT USED FOR UNKNOWN INDICATION
     Route: 065
  2. CYTARABINE. [Suspect]
     Active Substance: CYTARABINE
     Dosage: 1 G/M2 EVERY 12 HOURS
     Route: 065
  3. DAUNORUBICIN HCL [Suspect]
     Active Substance: DAUNORUBICIN HYDROCHLORIDE
     Indication: ACUTE MYELOID LEUKAEMIA
     Route: 065
  4. MYLOTARG [Suspect]
     Active Substance: GEMTUZUMAB OZOGAMICIN
     Indication: ACUTE MYELOID LEUKAEMIA
     Dosage: 3 MG/M2/DOSE (UP TO A TO MAXIMUM OF ONE 5 MG VIAL)
     Route: 065
  5. DAUNORUBICIN HCL [Suspect]
     Active Substance: DAUNORUBICIN HYDROCHLORIDE
     Route: 065

REACTIONS (8)
  - Blood lactate dehydrogenase increased [Unknown]
  - Lung consolidation [Unknown]
  - Pyrexia [Unknown]
  - Haemorrhage [Unknown]
  - Pneumonia klebsiella [Unknown]
  - Epistaxis [Unknown]
  - Haemoglobin decreased [Unknown]
  - White blood cell count decreased [Unknown]
